FAERS Safety Report 17116053 (Version 9)
Quarter: 2022Q3

REPORT INFORMATION
  Report Type: Report from Study
  Country: DE (occurrence: DE)
  Receive Date: 20191205
  Receipt Date: 20220907
  Transmission Date: 20221027
  Serious: Yes (Hospitalization)
  Sender: FDA-Public Use
  Company Number: NVSC2019DE054005

PATIENT
  Age: 62 Year
  Sex: Female
  Weight: 97.5 kg

DRUGS (22)
  1. CANAKINUMAB [Suspect]
     Active Substance: CANAKINUMAB
     Indication: Non-small cell lung cancer
     Dosage: UNK
     Route: 058
     Dates: start: 20190924, end: 20191105
  2. CANAKINUMAB [Suspect]
     Active Substance: CANAKINUMAB
     Dosage: UNK
     Route: 058
     Dates: start: 20191205
  3. PEMBROLIZUMAB [Suspect]
     Active Substance: PEMBROLIZUMAB
     Indication: Non-small cell lung cancer
     Dosage: 200 MG, Q3W
     Route: 042
     Dates: start: 20190924, end: 20191105
  4. PEMBROLIZUMAB [Suspect]
     Active Substance: PEMBROLIZUMAB
     Dosage: 200 MG, Q3W
     Route: 042
     Dates: start: 20191205
  5. PEMETREXED DISODIUM [Suspect]
     Active Substance: PEMETREXED DISODIUM
     Indication: Non-small cell lung cancer
     Dosage: 1030 MG, Q3W
     Route: 042
     Dates: start: 20190924, end: 20191105
  6. PEMETREXED DISODIUM [Suspect]
     Active Substance: PEMETREXED DISODIUM
     Dosage: 500 MG/M2, Q3W
     Route: 042
     Dates: start: 20191205
  7. CALCIUM CARBONATE\CHOLECALCIFEROL [Concomitant]
     Active Substance: CALCIUM CARBONATE\CHOLECALCIFEROL
     Indication: Metastasis
     Dosage: UNK
     Route: 065
     Dates: start: 20190909
  8. DIMENHYDRINATE [Concomitant]
     Active Substance: DIMENHYDRINATE
     Indication: Nausea
     Dosage: UNK
     Route: 065
     Dates: start: 20190930
  9. MCP [Concomitant]
     Active Substance: METOCLOPRAMIDE HYDROCHLORIDE
     Indication: Nausea
     Dosage: UNK
     Route: 065
     Dates: start: 20190930
  10. DULCOLAX NOS [Concomitant]
     Active Substance: BISACODYL OR DOCUSATE SODIUM
     Indication: Constipation
     Dosage: UNK
     Route: 065
     Dates: start: 20191114
  11. MAGNESIUM [Concomitant]
     Active Substance: MAGNESIUM
     Indication: Hypomagnesaemia
     Dosage: UNK
     Route: 065
     Dates: start: 20191126
  12. JANVIA [Concomitant]
     Indication: Diabetes mellitus
     Dosage: UNK
     Route: 065
     Dates: start: 20191126
  13. ENOXAPARIN SODIUM [Concomitant]
     Active Substance: ENOXAPARIN SODIUM
     Indication: Exercise lack of
     Dosage: UNK
     Route: 065
     Dates: start: 20191126, end: 20200109
  14. ENOXAPARIN SODIUM [Concomitant]
     Active Substance: ENOXAPARIN SODIUM
     Indication: Stenosis
  15. FOLIC ACID [Concomitant]
     Active Substance: FOLIC ACID
     Indication: Premedication
     Dosage: UNK
     Route: 065
     Dates: start: 20190909
  16. VITAMIN B12 [Concomitant]
     Active Substance: CYANOCOBALAMIN
     Indication: Premedication
     Dosage: UNK
     Route: 065
     Dates: start: 20190909
  17. LEVOTHYROXINE [Concomitant]
     Active Substance: LEVOTHYROXINE
     Indication: Thyroid mass
     Dosage: UNK
     Route: 065
     Dates: start: 1994
  18. LANTUS [Concomitant]
     Active Substance: INSULIN GLARGINE
     Indication: Diabetes mellitus
     Dosage: UNK
     Route: 065
     Dates: start: 2004
  19. METAMIZOLE [Concomitant]
     Active Substance: METAMIZOLE
     Indication: Pain in extremity
     Dosage: UNK
     Route: 065
     Dates: start: 20190909
  20. METAMIZOLE [Concomitant]
     Active Substance: METAMIZOLE
     Indication: Chest pain
  21. CITALOPRAM [Concomitant]
     Active Substance: CITALOPRAM HYDROBROMIDE
     Indication: Depression
     Dosage: UNK
     Route: 065
     Dates: start: 2009
  22. DENOSUMAB [Concomitant]
     Active Substance: DENOSUMAB
     Indication: Metastases to bone
     Dosage: UNK
     Route: 065
     Dates: start: 20190912

REACTIONS (1)
  - Hypertension [Recovered/Resolved]

NARRATIVE: CASE EVENT DATE: 20191126
